FAERS Safety Report 8438826-X (Version None)
Quarter: 2012Q2

REPORT INFORMATION
  Report Type: 
  Country: None (occurrence: None)
  Receive Date: 20120608
  Receipt Date: 20120528
  Transmission Date: 20120825
  Serious: Yes (Other)
  Sender: FDA-Public Use
  Company Number: DSA_57637_2012

PATIENT

DRUGS (4)
  1. FLUOROURACIL [Suspect]
     Indication: COLORECTAL CANCER METASTATIC
     Dosage: (400 MG/M2 INTRAVENOUS  BOLUS), (1200 MG/M2)
     Route: 042
  2. BEVACIZUMAB [Suspect]
     Indication: COLORECTAL CANCER METASTATIC
     Dosage: (5 MG/KG)
  3. LEUCOVORIN (NOT SPECIFIED) [Suspect]
     Indication: COLORECTAL CANCER METASTATIC
     Dosage: (400 MG/M2)
  4. CETUXIMAB [Suspect]
     Indication: COLORECTAL CANCER METASTATIC
     Dosage: (400 MG/M2; ONCE) (250 MG/M2)

REACTIONS (1)
  - DIARRHOEA [None]
